FAERS Safety Report 8424965-6 (Version None)
Quarter: 2012Q2

REPORT INFORMATION
  Report Type: 
  Country: None (occurrence: None)
  Receive Date: 20120611
  Receipt Date: 20120606
  Transmission Date: 20120825
  Serious: Yes (Other)
  Sender: FDA-Public Use
  Company Number: US-AMGEN-USASP2011019137

PATIENT
  Sex: Male

DRUGS (15)
  1. IMMUNE GLOBULIN (HUMAN) [Concomitant]
     Indication: IDIOPATHIC THROMBOCYTOPENIC PURPURA
  2. SERTRALINE HYDROCHLORIDE [Concomitant]
     Dosage: 100 MG, QD
  3. LORATADINE [Concomitant]
     Dosage: 10 MG, QD
  4. NPLATE [Suspect]
     Indication: IDIOPATHIC THROMBOCYTOPENIC PURPURA
     Dates: start: 20080924
  5. JANUVIA [Concomitant]
     Dosage: 100 MG, QD
  6. BETHANECHOL [Concomitant]
     Dosage: 50 MG, Q8H
  7. LISINOPRIL [Concomitant]
     Dosage: 10 MG, QD
  8. ACTOS [Concomitant]
     Dosage: 45 MG, QD
  9. VICODIN [Concomitant]
  10. GLIMEPIRIDE [Concomitant]
     Dosage: 8 MG, QD
  11. VYTORIN [Concomitant]
     Dosage: UNK UNK, QD
  12. MORPHINE SULFATE [Concomitant]
     Dosage: 15 MG, TID
  13. FEXOFENADINE [Concomitant]
     Dosage: 120 MG, TID
  14. TAMSULOSIN HCL [Concomitant]
     Dosage: 0.4 MG, QD
  15. PROMACTA [Concomitant]

REACTIONS (3)
  - INTERVERTEBRAL DISC DEGENERATION [None]
  - HAEMATURIA [None]
  - BENIGN PROSTATIC HYPERPLASIA [None]
